FAERS Safety Report 8528093 (Version 5)
Quarter: 2013Q4

REPORT INFORMATION
  Report Type: Spontaneous
  Country: US (occurrence: US)
  Receive Date: 20120424
  Receipt Date: 20131125
  Transmission Date: 20140711
  Serious: Yes (Hospitalization, Other)
  Sender: FDA-Public Use
  Company Number: US-009507513-1204USA03120

PATIENT
  Sex: Female

DRUGS (5)
  1. FOSAMAX [Suspect]
     Indication: OSTEOPOROSIS
     Dosage: 10 MG, UNK
     Route: 048
     Dates: start: 199510, end: 200201
  2. FOSAMAX [Suspect]
     Dosage: 70 MG, UNK
     Route: 048
     Dates: start: 200201, end: 200701
  3. ALENDRONATE SODIUM [Suspect]
     Indication: OSTEOPOROSIS
     Dosage: 70 MG, UNK
     Route: 048
     Dates: start: 200903, end: 201102
  4. ADVAIR [Concomitant]
     Indication: ASTHMA
     Dosage: 250/50 DF, BID
     Route: 055
  5. DUONEB [Concomitant]
     Indication: ASTHMA

REACTIONS (16)
  - Femur fracture [Unknown]
  - Open reduction of fracture [Unknown]
  - Hip arthroplasty [Unknown]
  - Knee arthroplasty [Unknown]
  - Shoulder arthroplasty [Unknown]
  - Knee arthroplasty [Unknown]
  - Rheumatoid arthritis [Unknown]
  - Hypertension [Unknown]
  - Glaucoma [Unknown]
  - Haematocrit decreased [Recovering/Resolving]
  - Chronic obstructive pulmonary disease [Unknown]
  - Excoriation [Unknown]
  - Appendicectomy [Unknown]
  - Hernia repair [Unknown]
  - Arthralgia [Not Recovered/Not Resolved]
  - Incisional hernia [Unknown]
